FAERS Safety Report 17061911 (Version 2)
Quarter: 2019Q4

REPORT INFORMATION
  Report Type: Spontaneous
  Country: AU (occurrence: AU)
  Receive Date: 20191121
  Receipt Date: 20191129
  Transmission Date: 20200122
  Serious: Yes (Hospitalization)
  Sender: FDA-Public Use
  Company Number: AU-ABBVIE-19K-008-3005293-00

PATIENT

DRUGS (1)
  1. DUODOPA [Suspect]
     Active Substance: CARBIDOPA\LEVODOPA
     Indication: DYSPHAGIA
     Route: 050
     Dates: start: 2014

REACTIONS (5)
  - Off label use [Unknown]
  - Unevaluable event [Unknown]
  - Depression [Unknown]
  - Pneumonia aspiration [Unknown]
  - Stridor [Not Recovered/Not Resolved]

NARRATIVE: CASE EVENT DATE: 2014
